FAERS Safety Report 4820992-6 (Version None)
Quarter: 2005Q4

REPORT INFORMATION
  Report Type: 
  Country: None (occurrence: None)
  Receive Date: 20051104
  Receipt Date: 20031008
  Transmission Date: 20060501
  Serious: Yes (Death, Hospitalization)
  Sender: FDA-Public Use
  Company Number: US-ROCHE-348747

PATIENT
  Age: 73 Year
  Sex: Female

DRUGS (7)
  1. CAPECITABINE [Suspect]
     Indication: BREAST CANCER
     Route: 048
     Dates: start: 20030718
  2. CAPECITABINE [Suspect]
     Dosage: DOSE REDUCED BY 25%
     Route: 048
  3. IXABEPILONE [Suspect]
     Indication: BREAST CANCER
     Route: 042
     Dates: start: 20030718, end: 20030808
  4. IXABEPILONE [Suspect]
     Dosage: DOSE REDUCED BY 20%
     Route: 042
  5. DILTIAZEM HCL [Concomitant]
  6. SYNTHROID [Concomitant]
  7. IRON [Concomitant]

REACTIONS (20)
  - ANOREXIA [None]
  - BACTERAEMIA [None]
  - BLOOD URIC ACID INCREASED [None]
  - CLOSTRIDIUM COLITIS [None]
  - DEATH [None]
  - DIARRHOEA [None]
  - FUNGAEMIA [None]
  - HYPERTENSION [None]
  - HYPOTENSION [None]
  - HYPOTHYROIDISM [None]
  - MULTI-ORGAN FAILURE [None]
  - NAUSEA [None]
  - PNEUMONIA BACTERIAL [None]
  - PNEUMONIA FUNGAL [None]
  - PULMONARY EMBOLISM [None]
  - RENAL FAILURE [None]
  - RESPIRATORY FAILURE [None]
  - SEPSIS [None]
  - SMALL INTESTINAL OBSTRUCTION [None]
  - VOMITING [None]
